FAERS Safety Report 21785319 (Version 1)
Quarter: 2022Q4

REPORT INFORMATION
  Report Type: Spontaneous
  Country: US (occurrence: None)
  Receive Date: 20221223
  Receipt Date: 20221223
  Transmission Date: 20230113
  Serious: Yes (Hospitalization)
  Sender: FDA-Public Use
  Company Number: None

PATIENT
  Sex: Female

DRUGS (2)
  1. OPSUMIT [Suspect]
     Active Substance: MACITENTAN
     Indication: Pulmonary arterial hypertension
     Dosage: 10MG ONCE DAILY ORA?
     Route: 048
     Dates: start: 20200506
  2. DEVICE [Suspect]
     Active Substance: DEVICE

REACTIONS (4)
  - Incorrect dose administered by device [None]
  - Pulmonary arterial hypertension [None]
  - Recalled product administered [None]
  - Device alarm issue [None]
